FAERS Safety Report 7435787-7 (Version None)
Quarter: 2011Q2

REPORT INFORMATION
  Report Type: 
  Country: None (occurrence: None)
  Receive Date: 20110418
  Receipt Date: 20110404
  Transmission Date: 20111010
  Serious: Yes (Life-Threatening)
  Sender: FDA-Public Use
  Company Number: 029314

PATIENT
  Sex: Female

DRUGS (6)
  1. XYZAL [Suspect]
     Indication: RHINITIS ALLERGIC
     Dosage: 5 MG QD, ORAL
     Route: 048
     Dates: start: 20110307, end: 20110307
  2. BENET [Concomitant]
  3. THYRADIN S [Concomitant]
  4. HERBESSER R [Concomitant]
  5. ALFAROL [Concomitant]
  6. PREDONINE [Concomitant]

REACTIONS (7)
  - DYSPNOEA [None]
  - CYANOSIS [None]
  - OXYGEN SATURATION DECREASED [None]
  - SHOCK [None]
  - TYPE I HYPERSENSITIVITY [None]
  - ASTHMA [None]
  - BLOOD PRESSURE DECREASED [None]
